FAERS Safety Report 17026896 (Version 1)
Quarter: 2019Q4

REPORT INFORMATION
  Report Type: Spontaneous
  Country: US (occurrence: US)
  Receive Date: 20191112
  Receipt Date: 20191112
  Transmission Date: 20200122
  Serious: Yes (Hospitalization)
  Sender: FDA-Public Use
  Company Number: None

PATIENT
  Sex: Male

DRUGS (9)
  1. PREDNISONE. [Concomitant]
     Active Substance: PREDNISONE
  2. SODIUM BICARB [Concomitant]
     Active Substance: SODIUM BICARBONATE
  3. TACROLIMUS. [Suspect]
     Active Substance: TACROLIMUS
     Indication: RENAL TRANSPLANT
     Route: 048
     Dates: start: 20190819
  4. MYCOPHENOLATE [Suspect]
     Active Substance: MYCOPHENOLIC ACID
     Indication: RENAL TRANSPLANT
     Route: 048
     Dates: start: 20190819
  5. HUMALOG [Concomitant]
     Active Substance: INSULIN LISPRO
  6. CALCITRIOL. [Concomitant]
     Active Substance: CALCITRIOL
  7. CARVEDILOL. [Concomitant]
     Active Substance: CARVEDILOL
  8. TORSEMIDE. [Concomitant]
     Active Substance: TORSEMIDE
  9. CLOPIDOGREL [Concomitant]
     Active Substance: CLOPIDOGREL BISULFATE

REACTIONS (1)
  - Myocardial infarction [None]
